FAERS Safety Report 10200834 (Version 2)
Quarter: 2014Q3

REPORT INFORMATION
  Report Type: Spontaneous
  Country: IT (occurrence: IT)
  Receive Date: 20140528
  Receipt Date: 20140730
  Transmission Date: 20150326
  Serious: Yes (Other)
  Sender: FDA-Public Use
  Company Number: IT-ELI_LILLY_AND_COMPANY-IT201405007200

PATIENT
  Age: 61 Year
  Sex: Male

DRUGS (4)
  1. ALIMTA [Suspect]
     Active Substance: PEMETREXED DISODIUM
     Indication: LUNG ADENOCARCINOMA
     Dosage: 900 MG, CYCLICAL
     Route: 042
     Dates: start: 20130201, end: 20140505
  2. CISPLATIN. [Concomitant]
     Active Substance: CISPLATIN
     Indication: LUNG ADENOCARCINOMA
  3. CYANOCOBALAMINE [Concomitant]
  4. FOLIC ACID. [Concomitant]
     Active Substance: FOLIC ACID

REACTIONS (9)
  - Skin hyperpigmentation [Unknown]
  - Pancytopenia [Recovering/Resolving]
  - Neutropenia [Unknown]
  - Generalised erythema [Recovering/Resolving]
  - Rash generalised [Unknown]
  - Anaemia [Recovered/Resolved]
  - Mucosal inflammation [Recovering/Resolving]
  - Pruritus [Recovering/Resolving]
  - Skin discolouration [Recovering/Resolving]

NARRATIVE: CASE EVENT DATE: 20140110
